FAERS Safety Report 15392930 (Version 3)
Quarter: 2022Q1

REPORT INFORMATION
  Report Type: Spontaneous
  Country: US (occurrence: None)
  Receive Date: 20180917
  Receipt Date: 20220120
  Transmission Date: 20220423
  Serious: No
  Sender: FDA-Public Use
  Company Number: 2018SF16252

PATIENT
  Sex: Male
  Weight: 84.4 kg

DRUGS (1)
  1. BYDUREON BCISE [Suspect]
     Active Substance: EXENATIDE
     Route: 065

REACTIONS (3)
  - Limb injury [Recovered/Resolved]
  - Skin indentation [Recovered/Resolved]
  - Device malfunction [Unknown]
